FAERS Safety Report 24409676 (Version 1)
Quarter: 2024Q4

REPORT INFORMATION
  Report Type: Spontaneous
  Country: US (occurrence: US)
  Receive Date: 20241008
  Receipt Date: 20241008
  Transmission Date: 20250115
  Serious: No
  Sender: TRIS PHARM
  Company Number: US-TRIS PHARMA, INC.-24US011663

PATIENT

DRUGS (1)
  1. DEXTROMETHORPHAN HYDROBROMIDE [Suspect]
     Active Substance: DEXTROMETHORPHAN HYDROBROMIDE
     Indication: Product used for unknown indication
     Dosage: UNK, BID
     Route: 048
     Dates: start: 20240929, end: 20240929

REACTIONS (1)
  - Tongue coated [Unknown]

NARRATIVE: CASE EVENT DATE: 20240929
